FAERS Safety Report 15482414 (Version 1)
Quarter: 2018Q4

REPORT INFORMATION
  Report Type: Spontaneous
  Country: US (occurrence: US)
  Receive Date: 20181003
  Receipt Date: 20181003
  Transmission Date: 20190205
  Serious: No
  Sender: FDA-Public Use
  Company Number: None

PATIENT
  Age: 73 Year
  Sex: Male

DRUGS (1)
  1. REVLIMID [Suspect]
     Active Substance: LENALIDOMIDE
     Indication: PLASMA CELL MYELOMA
     Route: 048
     Dates: start: 20171026

REACTIONS (4)
  - Anaemia [None]
  - Therapy cessation [None]
  - Leukopenia [None]
  - Thrombocytopenia [None]

NARRATIVE: CASE EVENT DATE: 20180925
